FAERS Safety Report 9291062 (Version 1)
Quarter: 2013Q2

REPORT INFORMATION
  Report Type: Spontaneous
  Country: FR (occurrence: FR)
  Receive Date: 20130515
  Receipt Date: 20130515
  Transmission Date: 20140414
  Serious: Yes (Other)
  Sender: FDA-Public Use
  Company Number: FR-ASTRAZENECA-2013SE31793

PATIENT
  Age: 38 Year
  Sex: Female

DRUGS (3)
  1. XEROQUEL [Suspect]
     Route: 048
     Dates: start: 2012
  2. DEPAKOTE [Suspect]
     Route: 048
     Dates: start: 2008
  3. CLOPIXOL [Suspect]
     Dosage: 200 MG/ML, TWICE MONTHLY
     Route: 030
     Dates: start: 1998

REACTIONS (3)
  - Loss of libido [Not Recovered/Not Resolved]
  - Hormone level abnormal [Not Recovered/Not Resolved]
  - Weight increased [Not Recovered/Not Resolved]
